FAERS Safety Report 18404349 (Version 1)
Quarter: 2020Q4

REPORT INFORMATION
  Report Type: Spontaneous
  Country: US (occurrence: US)
  Receive Date: 20201020
  Receipt Date: 20201020
  Transmission Date: 20210114
  Serious: No
  Sender: FDA-Public Use
  Company Number: US-MYLANLABS-2020M1087350

PATIENT
  Sex: Female

DRUGS (1)
  1. CLADRIBINE INJECTION [Suspect]
     Active Substance: CLADRIBINE
     Indication: PRODUCT USED FOR UNKNOWN INDICATION
     Dosage: 2 HOUR INFUSION ONCE DAILY FOR 5 DAYS
     Route: 042

REACTIONS (2)
  - Off label use [Recovered/Resolved]
  - No adverse event [Unknown]
